FAERS Safety Report 7571111 (Version 2)
Quarter: 2015Q2

REPORT INFORMATION
  Report Type: Report from Study
  Country: IT (occurrence: IT)
  Receive Date: 20100902
  Receipt Date: 20150626
  Transmission Date: 20150821
  Serious: Yes (Other)
  Sender: FDA-Public Use
  Company Number: IT-ROCHE-723722

PATIENT

DRUGS (5)
  1. INTERFERON ALFA-2A [Suspect]
     Active Substance: INTERFERON ALFA-2A
     Indication: METASTATIC RENAL CELL CARCINOMA
     Dosage: IN THE EVENING ON DAY 10, 12, 17 AND 19
     Route: 058
  2. GEMCITABINE [Suspect]
     Active Substance: GEMCITABINE\GEMCITABINE HYDROCHLORIDE
     Indication: METASTATIC RENAL CELL CARCINOMA
     Dosage: FREQUENCY: ON DAY1 AND 8 EVERY 28 DAYS
     Route: 042
  3. 5-FLUOROURACIL [Suspect]
     Active Substance: FLUOROURACIL
     Indication: METASTATIC RENAL CELL CARCINOMA
     Dosage: FREQUENCY: ON DAY1 AND 8 EVERY 28 DAYS
     Route: 040
  4. BEVACIZUMAB [Suspect]
     Active Substance: BEVACIZUMAB
     Indication: METASTATIC RENAL CELL CARCINOMA
     Dosage: ON DAY 1 AND 15, INFUSION LASTING FROM 30-90 MINS
     Route: 042
  5. IL-2 [Suspect]
     Active Substance: ALDESLEUKIN
     Indication: METASTATIC RENAL CELL CARCINOMA
     Dosage: DOSE: 1 MIU/M2
     Route: 058

REACTIONS (32)
  - Proteinuria [Recovered/Resolved]
  - Neurotoxicity [Recovered/Resolved]
  - Haemoptysis [Recovered/Resolved]
  - Depression [Unknown]
  - Depressed mood [Recovered/Resolved]
  - Leukopenia [Recovered/Resolved]
  - Thrombocytopenia [Recovered/Resolved]
  - Asthenia [Recovered/Resolved]
  - Musculoskeletal pain [Recovered/Resolved]
  - Pruritus [Unknown]
  - Myalgia [Recovered/Resolved]
  - Cough [Recovered/Resolved]
  - Thrombophlebitis [Recovered/Resolved]
  - Arthralgia [Recovered/Resolved]
  - Neutropenia [Recovered/Resolved]
  - Vomiting [Recovered/Resolved]
  - Hypertransaminasaemia [Recovered/Resolved]
  - Hypotension [Recovered/Resolved]
  - Pyrexia [Recovered/Resolved]
  - Hypertension [Recovered/Resolved]
  - Cardiotoxicity [Recovered/Resolved]
  - Hypoalbuminaemia [Recovered/Resolved]
  - Headache [Recovered/Resolved]
  - Deep vein thrombosis [Recovered/Resolved]
  - Pathological fracture [Unknown]
  - Hypercalcaemia [Unknown]
  - Alopecia [Recovered/Resolved]
  - Febrile neutropenia [Recovered/Resolved]
  - Renal failure [Recovered/Resolved]
  - Decreased appetite [Recovered/Resolved]
  - Anaemia [Recovered/Resolved]
  - Pain [Recovered/Resolved]
